FAERS Safety Report 25938884 (Version 1)
Quarter: 2025Q4

REPORT INFORMATION
  Report Type: Report from Study
  Country: GB (occurrence: GB)
  Receive Date: 20251019
  Receipt Date: 20251019
  Transmission Date: 20260119
  Serious: Yes (Other)
  Sender: ABBVIE
  Company Number: GB-ABBVIE-6507473

PATIENT
  Sex: Male

DRUGS (2)
  1. CARBIDOPA [Suspect]
     Active Substance: CARBIDOPA
     Indication: Parkinson^s disease
     Dosage: DOSE STRENGTH: 20MG/5MG
     Route: 050
  2. CARBIDOPA [Suspect]
     Active Substance: CARBIDOPA

REACTIONS (3)
  - Cerebrovascular accident [Unknown]
  - Facial paralysis [Unknown]
  - Dysarthria [Unknown]
